FAERS Safety Report 9501271 (Version 3)
Quarter: 2013Q4

REPORT INFORMATION
  Report Type: Report from Study
  Country: US (occurrence: US)
  Receive Date: 20130905
  Receipt Date: 20131226
  Transmission Date: 20140711
  Serious: Yes (Hospitalization, Other)
  Sender: FDA-Public Use
  Company Number: US-ACTELION-A-NJ2008-22892

PATIENT
  Age: 64 Year
  Sex: Female

DRUGS (5)
  1. TRACLEER [Suspect]
     Indication: PULMONARY ARTERIAL HYPERTENSION
     Dosage: 125 MG, BID
     Route: 048
     Dates: start: 20080905
  2. TRACLEER [Suspect]
     Dosage: 62.5 MG, BID
     Route: 048
     Dates: start: 20080805, end: 20080904
  3. REVATIO [Concomitant]
  4. COUMADIN [Suspect]
  5. LOVENOX [Suspect]

REACTIONS (12)
  - Haemorrhage [Recovering/Resolving]
  - Hiatus hernia [Recovering/Resolving]
  - Hernia hiatus repair [Recovering/Resolving]
  - Anaemia [Recovering/Resolving]
  - Transfusion [Recovering/Resolving]
  - Intestinal polyp [Recovered/Resolved]
  - Insomnia [Not Recovered/Not Resolved]
  - Restlessness [Not Recovered/Not Resolved]
  - Fatigue [Not Recovered/Not Resolved]
  - Rash [Recovering/Resolving]
  - Local swelling [Recovering/Resolving]
  - Haematochezia [Recovering/Resolving]
